FAERS Safety Report 8014035-3 (Version None)
Quarter: 2011Q4

REPORT INFORMATION
  Report Type: 
  Country: None (occurrence: None)
  Receive Date: 20111229
  Receipt Date: 20111221
  Transmission Date: 20120403
  Serious: Yes (Other)
  Sender: FDA-Public Use
  Company Number: US-BAYER-2011-086266

PATIENT
  Age: 38 Year
  Sex: Female
  Weight: 127 kg

DRUGS (1)
  1. MIRENA [Suspect]
     Indication: CONTRACEPTION
     Dosage: 20 MCG/24HR, CONT
     Route: 015
     Dates: start: 20100914, end: 20110811

REACTIONS (6)
  - DEVICE EXPULSION [None]
  - VAGINAL HAEMORRHAGE [None]
  - MEDICAL DEVICE COMPLICATION [None]
  - DEVICE DISLOCATION [None]
  - CERVICAL CYST [None]
  - ABDOMINAL PAIN [None]
